FAERS Safety Report 10231171 (Version 5)
Quarter: 2014Q3

REPORT INFORMATION
  Report Type: Spontaneous
  Country: US (occurrence: US)
  Receive Date: 20140611
  Receipt Date: 20140729
  Transmission Date: 20150326
  Serious: Yes (Other)
  Sender: FDA-Public Use
  Company Number: US-JNJFOC-20140604735

PATIENT

DRUGS (2)
  1. INFLIXIMAB, RECOMBINANT [Suspect]
     Active Substance: INFLIXIMAB
     Indication: COLITIS ULCERATIVE
     Route: 042
  2. IMMUNOSUPRESSANTS [Suspect]
     Active Substance: UNSPECIFIED INGREDIENT
     Indication: COLITIS ULCERATIVE
     Route: 065

REACTIONS (2)
  - Squamous cell carcinoma [Unknown]
  - Basal cell carcinoma [Unknown]
